FAERS Safety Report 19375239 (Version 1)
Quarter: 2021Q2

REPORT INFORMATION
  Report Type: Spontaneous
  Country: JP (occurrence: JP)
  Receive Date: 20210604
  Receipt Date: 20210604
  Transmission Date: 20210717
  Serious: Yes (Other)
  Sender: FDA-Public Use
  Company Number: JP-PFIZER INC-2021613526

PATIENT
  Sex: Male

DRUGS (3)
  1. LYRICA [Suspect]
     Active Substance: PREGABALIN
     Indication: INTERCOSTAL NEURALGIA
     Dosage: 2.5 MG, DAILY
     Route: 048
     Dates: start: 2016
  2. CYMBALTA [Concomitant]
     Active Substance: DULOXETINE HYDROCHLORIDE
  3. TOARASET [Concomitant]
     Active Substance: ACETAMINOPHEN\TRAMADOL HYDROCHLORIDE

REACTIONS (4)
  - Dysuria [Unknown]
  - Urinary retention [Unknown]
  - Urine output decreased [Unknown]
  - Off label use [Unknown]

NARRATIVE: CASE EVENT DATE: 2016
